FAERS Safety Report 5579597-4 (Version None)
Quarter: 2007Q4

REPORT INFORMATION
  Report Type: 
  Country: None (occurrence: None)
  Receive Date: 20071130
  Receipt Date: 20070706
  Transmission Date: 20080405
  Serious: No
  Sender: FDA-Public Use
  Company Number: US200707002093

PATIENT
  Age: 53 Year
  Sex: Male
  Weight: 111.6 kg

DRUGS (3)
  1. BYETTA [Suspect]
     Indication: TYPE 2 DIABETES MELLITUS
     Dosage: 5 UG, 2/D, SUBCUTANEOUS
     Route: 058
     Dates: start: 20070601, end: 20070705
  2. AVANDIA [Concomitant]
  3. GLUCOPHAGE/USA/ (METFORMIN HYDROCHLORIDE) [Concomitant]

REACTIONS (3)
  - INCREASED APPETITE [None]
  - NAUSEA [None]
  - WEIGHT INCREASED [None]
